FAERS Safety Report 7272304-9 (Version None)
Quarter: 2011Q1

REPORT INFORMATION
  Report Type: 
  Country: None (occurrence: None)
  Receive Date: 20110203
  Receipt Date: 20110125
  Transmission Date: 20110831
  Serious: Yes (Other)
  Sender: FDA-Public Use
  Company Number: PHHY2011DE05879

PATIENT
  Sex: Male

DRUGS (5)
  1. INEGY [Concomitant]
  2. METOPROLOL [Concomitant]
     Dosage: 1 DF, BID
  3. EUCREAS [Suspect]
     Dosage: 1 DF, BID
  4. DAFIRO HCT [Suspect]
  5. TORSEMIDE [Concomitant]
     Dosage: 10 MG, UNK

REACTIONS (1)
  - ATRIOVENTRICULAR BLOCK COMPLETE [None]
